FAERS Safety Report 16040209 (Version 1)
Quarter: 2019Q1

REPORT INFORMATION
  Report Type: Spontaneous
  Country: IT (occurrence: IT)
  Receive Date: 20190306
  Receipt Date: 20190306
  Transmission Date: 20190418
  Serious: Yes (Other)
  Sender: FDA-Public Use
  Company Number: IT-AUROBINDO-AUR-APL-2018-054115

PATIENT

DRUGS (7)
  1. DOXAZOSIN [Concomitant]
     Active Substance: DOXAZOSIN\DOXAZOSIN MESYLATE
     Indication: HYPERTENSION
     Dosage: ()
  2. SERPAX [Suspect]
     Active Substance: OXAZEPAM
     Indication: FEELING JITTERY
     Route: 048
  3. RAMIPRIL. [Concomitant]
     Active Substance: RAMIPRIL
     Indication: HYPERTENSION
     Dosage: ()
  4. MIRTAZAPINE DOC 30 MG FILM COATED TABLETS [Suspect]
     Active Substance: MIRTAZAPINE
     Indication: DEPRESSION
     Dosage: 2 DOSAGE FORM, DAILY
     Route: 048
  5. METFORMIN [Concomitant]
     Active Substance: METFORMIN HYDROCHLORIDE
     Indication: DIABETES MELLITUS
     Dosage: UNK
     Route: 065
  6. SOLOSA 3 MG, COMPRESSE [Concomitant]
     Indication: DIABETES MELLITUS
     Dosage: 1 DOSAGE FORM
     Route: 048
  7. XANAX [Suspect]
     Active Substance: ALPRAZOLAM
     Indication: FEELING JITTERY
     Route: 048

REACTIONS (4)
  - Dysarthria [Recovering/Resolving]
  - Balance disorder [Recovering/Resolving]
  - Asthenia [Recovering/Resolving]
  - Language disorder [Recovering/Resolving]

NARRATIVE: CASE EVENT DATE: 20181005
